FAERS Safety Report 19691836 (Version 1)
Quarter: 2021Q3

REPORT INFORMATION
  Report Type: Spontaneous
  Country: GB (occurrence: GB)
  Receive Date: 20210812
  Receipt Date: 20210812
  Transmission Date: 20211014
  Serious: Yes (Hospitalization, Other)
  Sender: FDA-Public Use
  Company Number: GB-MYLANLABS-2021M1050399

PATIENT
  Age: 75 Year
  Sex: Female
  Weight: 59.5 kg

DRUGS (12)
  1. AZATHIOPRINE. [Concomitant]
     Active Substance: AZATHIOPRINE
     Indication: ILL-DEFINED DISORDER
     Dosage: UNK
  2. COTRIMOXAZOLE [Concomitant]
     Active Substance: SULFAMETHOXAZOLE\TRIMETHOPRIM
     Indication: ILL-DEFINED DISORDER
     Dosage: UNK
  3. ADCAL D3 [Concomitant]
     Active Substance: CALCIUM CARBONATE\CHOLECALCIFEROL
     Indication: ILL-DEFINED DISORDER
     Dosage: UNK
  4. GABAPENTIN. [Concomitant]
     Active Substance: GABAPENTIN
     Indication: ILL-DEFINED DISORDER
     Dosage: UNK
  5. LANSOPRAZOLE. [Suspect]
     Active Substance: LANSOPRAZOLE
     Indication: GASTROOESOPHAGEAL REFLUX DISEASE
     Dosage: 30 MILLIGRAM, QD
     Route: 048
     Dates: start: 20180531, end: 20210301
  6. AZITHROMYCIN ANHYDROUS. [Concomitant]
     Active Substance: AZITHROMYCIN ANHYDROUS
     Indication: ILL-DEFINED DISORDER
     Dosage: UNK
  7. PREDNISOLONE. [Concomitant]
     Active Substance: PREDNISOLONE
     Indication: ILL-DEFINED DISORDER
     Dosage: UNK
  8. PARACETAMOL [Concomitant]
     Active Substance: ACETAMINOPHEN
     Indication: ILL-DEFINED DISORDER
     Dosage: UNK
  9. ALENDRONIC ACID [Concomitant]
     Active Substance: ALENDRONIC ACID
     Indication: ILL-DEFINED DISORDER
     Dosage: UNK
  10. CICLOSPORIN [Concomitant]
     Active Substance: CYCLOSPORINE
     Indication: ILL-DEFINED DISORDER
     Dosage: UNK
  11. ATORVASTATIN [Concomitant]
     Active Substance: ATORVASTATIN
     Indication: ILL-DEFINED DISORDER
     Dosage: UNK
  12. DIGOXIN. [Concomitant]
     Active Substance: DIGOXIN
     Indication: ILL-DEFINED DISORDER
     Dosage: UNK

REACTIONS (1)
  - Hyponatraemia [Not Recovered/Not Resolved]

NARRATIVE: CASE EVENT DATE: 20210301
